FAERS Safety Report 14263754 (Version 1)
Quarter: 2017Q4

REPORT INFORMATION
  Report Type: Spontaneous
  Country: US (occurrence: US)
  Receive Date: 20171208
  Receipt Date: 20171208
  Transmission Date: 20180321
  Serious: Yes (Life-Threatening, Hospitalization)
  Sender: FDA-Public Use
  Company Number: US-JNJFOC-20171209377

PATIENT
  Age: 63 Year
  Sex: Female

DRUGS (1)
  1. YONDELIS [Suspect]
     Active Substance: TRABECTEDIN
     Indication: LEIOMYOSARCOMA
     Dosage: 2 CYCLES
     Route: 042

REACTIONS (2)
  - Acute kidney injury [Unknown]
  - Pancytopenia [Unknown]

NARRATIVE: CASE EVENT DATE: 2017
